FAERS Safety Report 16947233 (Version 1)
Quarter: 2019Q4

REPORT INFORMATION
  Report Type: Spontaneous
  Country: US (occurrence: US)
  Receive Date: 20191022
  Receipt Date: 20191022
  Transmission Date: 20200122
  Serious: No
  Sender: FDA-Public Use
  Company Number: US-BECTON DICKINSON-2018BDN00499

PATIENT
  Age: 38 Year
  Sex: Female
  Weight: 154 kg

DRUGS (7)
  1. CHLORAPREP WITH TINT [Suspect]
     Active Substance: CHLORHEXIDINE GLUCONATE\ISOPROPYL ALCOHOL
     Indication: INFECTION PROPHYLAXIS
     Dosage: UNK
     Route: 061
     Dates: start: 20181213, end: 20181213
  2. CAMILA [Concomitant]
     Active Substance: NORETHINDRONE
     Dosage: 0.35, 1X/DAY
  3. MOTRIN [Concomitant]
     Active Substance: IBUPROFEN
     Dosage: 800 MG, 3X/DAY AS NEEDED
  4. FISH OIL [Concomitant]
     Active Substance: FISH OIL
     Dosage: 1000 MG, 2X/DAY
  5. CINNAMON. [Concomitant]
     Active Substance: CINNAMON
     Dosage: 500 MG, 1X/DAY
  6. LORATADINE. [Concomitant]
     Active Substance: LORATADINE
     Dosage: 10 MG, 1X/DAY
  7. ALPRAZOLAM. [Concomitant]
     Active Substance: ALPRAZOLAM
     Dosage: 0.5 MG, 3X/DAY AS NEEDED

REACTIONS (2)
  - Rash maculo-papular [Unknown]
  - Application site rash [Unknown]

NARRATIVE: CASE EVENT DATE: 201812
